FAERS Safety Report 8509243-9 (Version None)
Quarter: 2012Q3

REPORT INFORMATION
  Report Type: 
  Country: None (occurrence: None)
  Receive Date: 20120703
  Receipt Date: 20120618
  Transmission Date: 20120928
  Serious: Yes (Hospitalization)
  Sender: FDA-Public Use
  Company Number: 1329541

PATIENT
  Age: 70 Year
  Sex: Female
  Weight: 81.64 kg

DRUGS (1)
  1. METHOTREXATE [Suspect]
     Indication: PRODUCT USED FOR UNKNOWN INDICATION
     Dosage: SUBCUTANEOUS
     Route: 058
     Dates: end: 20120510

REACTIONS (6)
  - PNEUMOCYSTIS JIROVECI PNEUMONIA [None]
  - ACUTE INTERSTITIAL PNEUMONITIS [None]
  - OXYGEN CONSUMPTION INCREASED [None]
  - DYSPNOEA [None]
  - CREPITATIONS [None]
  - INFLUENZA LIKE ILLNESS [None]
